FAERS Safety Report 22116738 (Version 4)
Quarter: 2023Q2

REPORT INFORMATION
  Report Type: Spontaneous
  Country: JP (occurrence: JP)
  Receive Date: 20230320
  Receipt Date: 20230522
  Transmission Date: 20230721
  Serious: Yes (Life-Threatening, Hospitalization, Other)
  Sender: FDA-Public Use
  Company Number: JP-DSJP-DSJ-2023-110152

PATIENT
  Age: 69 Year
  Sex: Male
  Weight: 48.5 kg

DRUGS (7)
  1. PRASUGREL HYDROCHLORIDE [Suspect]
     Active Substance: PRASUGREL HYDROCHLORIDE
     Indication: Chest pain
     Dosage: 3.75 MG, QD
     Route: 048
     Dates: start: 20220721, end: 20220725
  2. PRASUGREL HYDROCHLORIDE [Suspect]
     Active Substance: PRASUGREL HYDROCHLORIDE
     Indication: Angina pectoris
  3. ASPIRIN [Suspect]
     Active Substance: ASPIRIN
     Indication: Chest pain
     Dosage: 100 MG, QD
     Route: 048
     Dates: start: 20220721, end: 20220725
  4. HEPARIN [Suspect]
     Active Substance: HEPARIN SODIUM
     Dosage: 10000IU/DAY
     Route: 041
     Dates: start: 20220721, end: 20220725
  5. ROSUVASTATIN CALCIUM [Concomitant]
     Active Substance: ROSUVASTATIN CALCIUM
     Dosage: 5 MG, QD
     Route: 048
     Dates: start: 20220721, end: 20220725
  6. ACETAMINOPHEN [Concomitant]
     Active Substance: ACETAMINOPHEN
     Dosage: 900 MG, TID
     Route: 048
     Dates: start: 20220721, end: 20220725
  7. ISOSORBIDE DINITRATE [Concomitant]
     Active Substance: ISOSORBIDE DINITRATE
     Dosage: 2MG/H
     Route: 041
     Dates: start: 20220721, end: 20220725

REACTIONS (7)
  - Intra-abdominal haemorrhage [Recovered/Resolved with Sequelae]
  - Arterial injury [Recovered/Resolved with Sequelae]
  - Shock haemorrhagic [Unknown]
  - Gastrointestinal necrosis [Unknown]
  - Acute kidney injury [Recovering/Resolving]
  - Hepatic artery aneurysm [Unknown]
  - Pancreatic leak [Recovering/Resolving]

NARRATIVE: CASE EVENT DATE: 20220101
